FAERS Safety Report 8802087 (Version 2)
Quarter: 2012Q4

REPORT INFORMATION
  Report Type: 
  Country: JP (occurrence: JP)
  Receive Date: 20120921
  Receipt Date: 20121101
  Transmission Date: 20130627
  Serious: Yes (Death, Hospitalization, Other)
  Sender: FDA-Public Use
  Company Number: JP-TEVA-355848USA

PATIENT
  Age: 55 Year
  Sex: Male

DRUGS (4)
  1. TREANDA [Suspect]
     Indication: B-CELL LYMPHOMA
     Dosage: UID/QD
     Route: 042
     Dates: start: 20120614
  2. FOSAPREPITANT MEGLUMINE [Suspect]
     Indication: PROPHYLAXIS
     Dosage: 150 Milligram Daily;
     Route: 048
     Dates: start: 20120705
  3. SULFAMETHOXAZOLE/TRIMETHOPRIM [Concomitant]
     Indication: INFECTION PROPHYLAXIS
     Dates: start: 20110921, end: 20120905
  4. FAMOTIDINE [Concomitant]
     Indication: INFECTION PROPHYLAXIS
     Dates: start: 20110921, end: 20120905

REACTIONS (8)
  - Multi-organ failure [Fatal]
  - Toxic skin eruption [Recovering/Resolving]
  - Stevens-Johnson syndrome [Recovering/Resolving]
  - Erythema [Recovering/Resolving]
  - General physical health deterioration [Not Recovered/Not Resolved]
  - Drug reaction with eosinophilia and systemic symptoms [Recovering/Resolving]
  - Liver injury [Unknown]
  - Eye discharge [Recovering/Resolving]
